FAERS Safety Report 7786331-6 (Version None)
Quarter: 2011Q3

REPORT INFORMATION
  Report Type: 
  Country: None (occurrence: None)
  Receive Date: 20110929
  Receipt Date: 20110923
  Transmission Date: 20111222
  Serious: Yes (Other)
  Sender: FDA-Public Use
  Company Number: PHEH2011US04985

PATIENT
  Sex: Female
  Weight: 47.166 kg

DRUGS (8)
  1. EXJADE [Suspect]
     Indication: IRON OVERLOAD
     Dosage: 875 MG, DAILY
     Route: 048
     Dates: start: 20100930, end: 20110419
  2. FOLIC ACID [Concomitant]
     Dosage: 1 MG, DAILY
  3. LASIX [Concomitant]
     Dosage: 20 MG, DAILY
  4. AGGRENOX [Concomitant]
     Dosage: UNK UKN, 200-25 MG Q 12 HRS
  5. POTASSIUM CHLORIDE [Concomitant]
     Dosage: 40 MEQ, DAILY
  6. DEXAMETHASONE [Concomitant]
     Dosage: 40 MG, 1 THROUGH 4 EVERY 28 DAYS
  7. THALIDOMIDE [Concomitant]
     Dosage: 100 MG, DAILY
  8. MARINOL [Concomitant]
     Dosage: 2.5 MG, BID

REACTIONS (5)
  - PATHOLOGICAL FRACTURE [None]
  - FATIGUE [None]
  - GASTROINTESTINAL DISORDER [None]
  - PAIN IN EXTREMITY [None]
  - RENAL IMPAIRMENT [None]
